FAERS Safety Report 23861892 (Version 1)
Quarter: 2024Q2

REPORT INFORMATION
  Report Type: Spontaneous
  Country: US (occurrence: US)
  Receive Date: 20240516
  Receipt Date: 20240516
  Transmission Date: 20240716
  Serious: Yes (Disabling, Other)
  Sender: FDA-Public Use
  Company Number: US-TEVA-VS-3198757

PATIENT
  Sex: Male

DRUGS (3)
  1. FLUOXETINE [Suspect]
     Active Substance: FLUOXETINE HYDROCHLORIDE
     Indication: Migraine
     Route: 065
     Dates: start: 201710
  2. FLUOXETINE [Suspect]
     Active Substance: FLUOXETINE HYDROCHLORIDE
     Indication: Migraine
     Route: 065
     Dates: start: 201709
  3. FLUOXETINE [Suspect]
     Active Substance: FLUOXETINE HYDROCHLORIDE
     Indication: Migraine
     Route: 065

REACTIONS (58)
  - Post-traumatic stress disorder [Unknown]
  - Alopecia areata [Recovering/Resolving]
  - Post-traumatic stress disorder [Not Recovered/Not Resolved]
  - Obsessive-compulsive disorder [Not Recovered/Not Resolved]
  - Dissociative disorder [Unknown]
  - Confusional state [Unknown]
  - Disorientation [Unknown]
  - Motor dysfunction [Unknown]
  - Gastrooesophageal reflux disease [Unknown]
  - Schizoaffective disorder [Unknown]
  - Generalised anxiety disorder [Unknown]
  - Major depression [Unknown]
  - Dyspepsia [Unknown]
  - Loss of personal independence in daily activities [Unknown]
  - Self esteem decreased [Not Recovered/Not Resolved]
  - Restlessness [Not Recovered/Not Resolved]
  - Sleep terror [Not Recovered/Not Resolved]
  - Fear [Not Recovered/Not Resolved]
  - Injury [Not Recovered/Not Resolved]
  - Skin burning sensation [Unknown]
  - Anxiety [Not Recovered/Not Resolved]
  - Irritable bowel syndrome [Unknown]
  - Gastrooesophageal reflux disease [Unknown]
  - Chronic gastritis [Unknown]
  - Abdominal pain lower [Unknown]
  - Change of bowel habit [Unknown]
  - Abdominal pain upper [Unknown]
  - Nausea [Unknown]
  - Dysphagia [Unknown]
  - Diarrhoea [Unknown]
  - Abdominal distension [Unknown]
  - Anal haemorrhage [Unknown]
  - Rectal haemorrhage [Unknown]
  - Abdominal pain lower [Unknown]
  - Gastrointestinal infection [Unknown]
  - Reading disorder [Unknown]
  - Communication disorder [Unknown]
  - Dyspepsia [Unknown]
  - Life expectancy shortened [Not Recovered/Not Resolved]
  - Substance-induced psychotic disorder [Unknown]
  - Mental disorder [Unknown]
  - General physical health deterioration [Unknown]
  - Insomnia [Unknown]
  - Nervousness [Unknown]
  - Anhedonia [Unknown]
  - Migraine [Unknown]
  - Hallucination [Unknown]
  - Gastrointestinal disorder [Unknown]
  - Seborrhoeic dermatitis [Not Recovered/Not Resolved]
  - Abdominal pain lower [Unknown]
  - Vomiting [Unknown]
  - Urinary tract infection [Unknown]
  - Nephrolithiasis [Unknown]
  - Impaired work ability [Unknown]
  - Hyperventilation [Unknown]
  - Hand-eye coordination impaired [Unknown]
  - Dyskinesia [Unknown]
  - Abdominal discomfort [Unknown]

NARRATIVE: CASE EVENT DATE: 20170905
